FAERS Safety Report 7746495 (Version 3)
Quarter: 2012Q4

REPORT INFORMATION
  Report Type: Report from Study
  Country: JP (occurrence: JP)
  Receive Date: 20110103
  Receipt Date: 20121008
  Transmission Date: 20130627
  Serious: Yes (Hospitalization)
  Sender: FDA-Public Use
  Company Number: JP-ROCHE-749060

PATIENT
  Age: 72 Year
  Sex: Male

DRUGS (27)
  1. ROACTEMRA [Suspect]
     Indication: RHEUMATOID ARTHRITIS
     Dosage: DOSAGE IS UNCERTAIN.
     Route: 041
     Dates: start: 20090729, end: 20090729
  2. ROACTEMRA [Suspect]
     Route: 041
     Dates: start: 20090826, end: 20090826
  3. ROACTEMRA [Suspect]
     Route: 041
     Dates: start: 20090925, end: 20090925
  4. ROACTEMRA [Suspect]
     Route: 041
     Dates: start: 20091022, end: 20091022
  5. ROACTEMRA [Suspect]
     Route: 041
     Dates: start: 20091119, end: 20091119
  6. ROACTEMRA [Suspect]
     Route: 041
     Dates: start: 20091217, end: 20091217
  7. ROACTEMRA [Suspect]
     Route: 041
     Dates: start: 20100114, end: 20100114
  8. ROACTEMRA [Suspect]
     Route: 041
     Dates: start: 20100215, end: 20100215
  9. ROACTEMRA [Suspect]
     Route: 041
     Dates: start: 20100315, end: 20100315
  10. ROACTEMRA [Suspect]
     Route: 041
     Dates: start: 20100412, end: 20100412
  11. ROACTEMRA [Suspect]
     Route: 041
     Dates: start: 20100510, end: 20100510
  12. ROACTEMRA [Suspect]
     Route: 041
     Dates: start: 20100607, end: 20100607
  13. ROACTEMRA [Suspect]
     Route: 041
     Dates: start: 20100705, end: 20101122
  14. PREDNISOLONE [Suspect]
     Indication: RHEUMATOID ARTHRITIS
     Route: 048
  15. PREDNISOLONE [Suspect]
     Route: 048
  16. PREDNISOLONE [Suspect]
     Route: 048
  17. ACTONEL [Concomitant]
     Indication: OSTEOPOROSIS
     Route: 048
  18. SALAZOSULFAPYRIDINE [Concomitant]
     Indication: RHEUMATOID ARTHRITIS
     Dosage: REPORTED AS: ASASURFAN  DOSAGE FORM: ENTERIC COATING DRUG
     Route: 048
  19. BUCILLAMINE [Concomitant]
     Indication: RHEUMATOID ARTHRITIS
     Route: 048
  20. VOLTAREN SR [Concomitant]
     Indication: RHEUMATOID ARTHRITIS
     Route: 048
  21. CYTOTEC [Concomitant]
     Route: 048
  22. ASPARA-CA [Concomitant]
     Indication: PROPHYLAXIS
     Route: 048
  23. CALFINA [Concomitant]
     Indication: OSTEOPOROSIS
     Route: 048
  24. PROCYLIN [Concomitant]
     Indication: PROPHYLAXIS
     Route: 048
  25. PROCYLIN [Concomitant]
     Route: 048
  26. FERROMIA [Concomitant]
     Route: 048
  27. CINAL [Concomitant]
     Route: 048

REACTIONS (2)
  - Mycobacterium avium complex infection [Not Recovered/Not Resolved]
  - Pleurisy [Not Recovered/Not Resolved]
